FAERS Safety Report 10573632 (Version 1)
Quarter: 2014Q4

REPORT INFORMATION
  Report Type: Spontaneous
  Country: BE (occurrence: BE)
  Receive Date: 20141110
  Receipt Date: 20141110
  Transmission Date: 20150529
  Serious: Yes (Hospitalization, Other)
  Sender: FDA-Public Use
  Company Number: BE-JNJFOC-20141100543

PATIENT
  Age: 90 Year
  Sex: Female
  Weight: 65 kg

DRUGS (8)
  1. XARELTO [Suspect]
     Active Substance: RIVAROXABAN
     Indication: THROMBOSIS PROPHYLAXIS
     Route: 048
     Dates: start: 20140917, end: 20140922
  2. BURINEX [Concomitant]
     Active Substance: BUMETANIDE
     Route: 065
  3. COUMARIN [Concomitant]
     Active Substance: COUMARIN
     Indication: ATRIAL FIBRILLATION
     Route: 065
  4. XARELTO [Suspect]
     Active Substance: RIVAROXABAN
     Indication: ANTICOAGULANT THERAPY
     Route: 048
     Dates: start: 20140917, end: 20140922
  5. XARELTO [Suspect]
     Active Substance: RIVAROXABAN
     Indication: ANTICOAGULANT THERAPY
     Route: 048
     Dates: start: 20140815, end: 20140916
  6. CORDARONE [Concomitant]
     Active Substance: AMIODARONE HYDROCHLORIDE
     Route: 065
  7. AMLOR [Concomitant]
     Active Substance: AMLODIPINE BESYLATE
     Route: 065
  8. XARELTO [Suspect]
     Active Substance: RIVAROXABAN
     Indication: THROMBOSIS PROPHYLAXIS
     Route: 048
     Dates: start: 20140815, end: 20140916

REACTIONS (3)
  - Vaginal haemorrhage [Recovering/Resolving]
  - Blood product transfusion [Unknown]
  - Haemoglobin decreased [Unknown]

NARRATIVE: CASE EVENT DATE: 20140908
